FAERS Safety Report 12393101 (Version 3)
Quarter: 2016Q3

REPORT INFORMATION
  Report Type: Spontaneous
  Country: US (occurrence: US)
  Receive Date: 20160523
  Receipt Date: 20160727
  Transmission Date: 20161109
  Serious: No
  Sender: FDA-Public Use
  Company Number: US-PFIZER INC-2016247692

PATIENT
  Age: 59 Year
  Sex: Male
  Weight: 121.7 kg

DRUGS (5)
  1. PRINZIDE, ZESTORETIC [Concomitant]
     Dosage: 1 DF, DAILY
     Route: 048
  2. FIORICET [Concomitant]
     Active Substance: ACETAMINOPHEN\BUTALBITAL\CAFFEINE
     Indication: HEADACHE
     Dosage: BUTALBITAL: 50MG, PARACETAMOL:325MG, CAFFEINE: 40MG, TAKE 1-2 TABLETS, EVERY 6 (SIX) HOURS AS NEEDED
     Route: 048
  3. LOPID [Concomitant]
     Active Substance: GEMFIBROZIL
     Indication: HYPERCHOLESTEROLAEMIA
     Dosage: 600 MG, 2X/DAY
     Route: 048
     Dates: start: 201402, end: 201405
  4. GEMFIBROZIL. [Suspect]
     Active Substance: GEMFIBROZIL
     Indication: BLOOD CHOLESTEROL INCREASED
     Dosage: 1200 MG, 1X/DAY
     Route: 048
     Dates: start: 201405
  5. PRILOSEC [Concomitant]
     Active Substance: OMEPRAZOLE MAGNESIUM
     Dosage: 20 MG, DAILY
     Route: 048

REACTIONS (1)
  - Alopecia [Not Recovered/Not Resolved]

NARRATIVE: CASE EVENT DATE: 201405
